FAERS Safety Report 9026271 (Version 1)
Quarter: 2012Q4

REPORT INFORMATION
  Report Type: Spontaneous
  Country: US (occurrence: None)
  Receive Date: 20121217
  Receipt Date: 20121217
  Transmission Date: 20130627
  Serious: Yes (Life-Threatening)
  Sender: FDA-Public Use
  Company Number: None

PATIENT
  Age: 70 Year
  Sex: Female
  Weight: 64.41 kg

DRUGS (2)
  1. CYMBALTA [Suspect]
     Indication: BACK PAIN
     Dosage: 1 pill  once a day   mouth
6-2007   (1 week)  5 days
     Route: 048
     Dates: start: 200706
  2. CYMBALTA [Suspect]
     Indication: FIBROMYALGIA
     Dosage: 1 pill  once a day   mouth
6-2007   (1 week)  5 days
     Route: 048
     Dates: start: 200706

REACTIONS (1)
  - Suicidal ideation [None]
